FAERS Safety Report 12671455 (Version 1)
Quarter: 2016Q3

REPORT INFORMATION
  Report Type: Spontaneous
  Country: US (occurrence: None)
  Receive Date: 20160819
  Receipt Date: 20160819
  Transmission Date: 20161109
  Serious: Yes (Death)
  Sender: FDA-Public Use
  Company Number: None

PATIENT
  Age: 59 Year
  Sex: Male
  Weight: 124 kg

DRUGS (1)
  1. ALBIGLUTIDE [Suspect]
     Active Substance: ALBIGLUTIDE
     Indication: DIABETES MELLITUS

REACTIONS (11)
  - Abdominal pain upper [None]
  - Oliguria [None]
  - Pulmonary oedema [None]
  - Cardiac arrest [None]
  - Hepatic steatosis [None]
  - Hypotension [None]
  - Pulseless electrical activity [None]
  - Renal impairment [None]
  - Abdominal distension [None]
  - Pancreatitis acute [None]
  - Vomiting [None]

NARRATIVE: CASE EVENT DATE: 20160711
